FAERS Safety Report 6806633-7 (Version None)
Quarter: 2010Q2

REPORT INFORMATION
  Report Type: 
  Country: None (occurrence: None)
  Receive Date: 20100629
  Receipt Date: 20080404
  Transmission Date: 20101027
  Serious: No
  Sender: FDA-Public Use
  Company Number: US-PFIZER INC-2008030028

PATIENT
  Sex: Male
  Weight: 68.181 kg

DRUGS (2)
  1. ALDACTONE [Suspect]
     Route: 048
     Dates: start: 20070801, end: 20080401
  2. ESTRADIOL [Concomitant]

REACTIONS (2)
  - DRUG ABUSE [None]
  - ILL-DEFINED DISORDER [None]
